FAERS Safety Report 24201571 (Version 1)
Quarter: 2024Q3

REPORT INFORMATION
  Report Type: Spontaneous
  Country: JP (occurrence: JP)
  Receive Date: 20240812
  Receipt Date: 20240812
  Transmission Date: 20241016
  Serious: Yes (Hospitalization)
  Sender: FERRING
  Company Number: JP-ferring-EVA202401212FERRINGPH

PATIENT

DRUGS (2)
  1. DESMOPRESSIN ACETATE [Suspect]
     Active Substance: DESMOPRESSIN ACETATE
     Indication: Diabetes insipidus
     Dosage: 60 UG, 3 TIMES DAILY (EVERY 8 HOURS)/ 180UG DAILY
     Route: 065
  2. DESMOPRESSIN ACETATE [Suspect]
     Active Substance: DESMOPRESSIN ACETATE
     Dosage: 60 UG

REACTIONS (5)
  - Cardiac failure congestive [Unknown]
  - Product use issue [Unknown]
  - Wrong technique in product usage process [Unknown]
  - Labelled drug-disease interaction medication error [Unknown]
  - Contraindicated product administered [Unknown]
